FAERS Safety Report 6951883-2 (Version None)
Quarter: 2010Q3

REPORT INFORMATION
  Report Type: 
  Country: None (occurrence: None)
  Receive Date: 20100829
  Receipt Date: 20100416
  Transmission Date: 20110219
  Serious: No
  Sender: FDA-Public Use
  Company Number: US-ABBOTT-10P-163-0639238-00

PATIENT
  Sex: Male
  Weight: 72.64 kg

DRUGS (2)
  1. NIASPAN [Suspect]
     Indication: DYSLIPIDAEMIA
     Dosage: 500 MG DAILY AT BEDTIME
     Route: 048
     Dates: start: 20100326
  2. SIMVASTATIN [Concomitant]
     Indication: PRODUCT USED FOR UNKNOWN INDICATION

REACTIONS (2)
  - ERYTHEMA [None]
  - FLUSHING [None]
